FAERS Safety Report 5635681-8 (Version None)
Quarter: 2008Q1

REPORT INFORMATION
  Report Type: 
  Country: None (occurrence: None)
  Receive Date: 20080220
  Receipt Date: 20071210
  Transmission Date: 20080703
  Serious: Yes (Death, Congenital Anomaly)
  Sender: FDA-Public Use
  Company Number: 2007EU002730

PATIENT
  Sex: Male
  Weight: 0.2 kg

DRUGS (5)
  1. PROGRAF [Suspect]
     Dosage: 7 MG, /D, TRANSPLACENTAL
     Route: 064
  2. AZATHIOPRINE SODIUM [Suspect]
     Dosage: /D, TRANSPLACENTAL
     Route: 064
  3. ASPEGIC 1000 [Suspect]
     Dosage: /D, TRANSPLACENTAL
     Route: 064
  4. PREDNISOLONE [Suspect]
     Dosage: 1 DF, /D, TRANSPLACENTAL
     Route: 064
  5. SPECIAFOLDINE (FOLIC ACID) [Concomitant]

REACTIONS (7)
  - ABORTION INDUCED [None]
  - CONGENITAL BLADDER ANOMALY [None]
  - CONGENITAL CARDIOVASCULAR ANOMALY [None]
  - DRUG EXPOSURE DURING PREGNANCY [None]
  - OLIGOHYDRAMNIOS [None]
  - RENAL HYPOPLASIA [None]
  - URETHRAL VALVES [None]
